FAERS Safety Report 23298664 (Version 1)
Quarter: 2023Q4

REPORT INFORMATION
  Report Type: Spontaneous
  Country: US (occurrence: US)
  Receive Date: 20231214
  Receipt Date: 20231214
  Transmission Date: 20240110
  Serious: No
  Sender: FDA-Public Use
  Company Number: US-009507513-2311USA005330

PATIENT
  Age: 38 Year
  Sex: Female

DRUGS (3)
  1. INVANZ [Suspect]
     Active Substance: ERTAPENEM SODIUM
     Indication: Escherichia infection
     Dosage: UNK
     Route: 042
  2. INVANZ [Suspect]
     Active Substance: ERTAPENEM SODIUM
     Indication: Actinomyces test positive
  3. INVANZ [Suspect]
     Active Substance: ERTAPENEM SODIUM
     Indication: Bacterial infection

REACTIONS (1)
  - Incorrect product administration duration [Unknown]
